FAERS Safety Report 5240972-9 (Version None)
Quarter: 2007Q1

REPORT INFORMATION
  Report Type: 
  Country: None (occurrence: None)
  Receive Date: 20061201
  Receipt Date: 20060804
  Transmission Date: 20070707
  Serious: No
  Sender: FDA-Public Use
  Company Number: 2006PV018888

PATIENT
  Age: 51 Year
  Sex: Female
  Weight: 79.3795 kg

DRUGS (4)
  1. BYETTA [Suspect]
     Indication: INSULIN RESISTANT DIABETES
     Dosage: SEE IMAGE
     Route: 058
     Dates: start: 20060526, end: 20060601
  2. BYETTA [Suspect]
     Indication: INSULIN RESISTANT DIABETES
     Dosage: SEE IMAGE
     Route: 058
     Dates: start: 20060803
  3. METFORMIN HCL [Concomitant]
  4. ACTOS /USA/ [Concomitant]

REACTIONS (4)
  - DECREASED APPETITE [None]
  - MOOD SWINGS [None]
  - NAUSEA [None]
  - WEIGHT DECREASED [None]
